FAERS Safety Report 4381201-8 (Version None)
Quarter: 2004Q2

REPORT INFORMATION
  Report Type: 
  Country: None (occurrence: None)
  Receive Date: 20040614
  Receipt Date: 20040528
  Transmission Date: 20050107
  Serious: Yes (Hospitalization)
  Sender: FDA-Public Use
  Company Number: URSO-2004-005

PATIENT
  Age: 29 Year
  Sex: Female

DRUGS (3)
  1. URSO [Suspect]
     Indication: CHOLESTASIS OF PREGNANCY
     Dosage: 750 MG
     Route: 048
     Dates: start: 19990920, end: 19990920
  2. PREGADAY (FOLIC ACID) [Concomitant]
  3. IRON (IRON COMPOUNDS AND PREPARATIONS (INCLUDING ORGANO-IRON CO) [Concomitant]

REACTIONS (3)
  - HYPOTENSION [None]
  - PRURITUS [None]
  - RASH ERYTHEMATOUS [None]
